FAERS Safety Report 23568529 (Version 4)
Quarter: 2025Q2

REPORT INFORMATION
  Report Type: Report from Study
  Country: GB (occurrence: GB)
  Receive Date: 20240227
  Receipt Date: 20250418
  Transmission Date: 20250717
  Serious: Yes (Hospitalization)
  Sender: ROCHE
  Company Number: GB-ROCHE-3514668

PATIENT
  Sex: Female

DRUGS (2)
  1. RISDIPLAM [Suspect]
     Active Substance: RISDIPLAM
     Indication: Product used for unknown indication
     Route: 065
     Dates: start: 202401
  2. RISDIPLAM [Suspect]
     Active Substance: RISDIPLAM
     Route: 065
     Dates: start: 202401

REACTIONS (1)
  - Implantation complication [Unknown]
